FAERS Safety Report 15729100 (Version 3)
Quarter: 2019Q1

REPORT INFORMATION
  Report Type: Spontaneous
  Country: US (occurrence: US)
  Receive Date: 20181217
  Receipt Date: 20190213
  Transmission Date: 20190417
  Serious: No
  Sender: FDA-Public Use
  Company Number: US-009507513-1812USA004430

PATIENT
  Age: 45 Year
  Sex: Female

DRUGS (1)
  1. NEXPLANON [Suspect]
     Active Substance: ETONOGESTREL
     Dosage: 1 DOSAGE FORM, 1 IMPLANT
     Route: 059

REACTIONS (4)
  - Complication of device insertion [Recovered/Resolved]
  - Device difficult to use [Recovered/Resolved]
  - Device kink [Recovered/Resolved]
  - Product quality issue [Unknown]

NARRATIVE: CASE EVENT DATE: 20181127
